FAERS Safety Report 12385521 (Version 1)
Quarter: 2016Q2

REPORT INFORMATION
  Report Type: Spontaneous
  Country: FR (occurrence: FR)
  Receive Date: 20160519
  Receipt Date: 20160519
  Transmission Date: 20160815
  Serious: Yes (Life-Threatening, Hospitalization)
  Sender: FDA-Public Use
  Company Number: FR-FRI-1000084711

PATIENT
  Age: 49 Year
  Sex: Male
  Weight: 68 kg

DRUGS (7)
  1. VALIUM [Concomitant]
     Active Substance: DIAZEPAM
     Indication: PRODUCT USED FOR UNKNOWN INDICATION
     Dosage: 30 MG
  2. PAROXETINE. [Suspect]
     Active Substance: PAROXETINE
     Indication: PRODUCT USED FOR UNKNOWN INDICATION
     Dosage: 40 MG
     Route: 048
  3. PAROXETINE. [Suspect]
     Active Substance: PAROXETINE
     Route: 048
     Dates: start: 20150907, end: 20150908
  4. ACAMPROSATE [Suspect]
     Active Substance: ACAMPROSATE
     Dosage: 60 TABLETS
     Route: 048
     Dates: start: 20150907, end: 20150908
  5. BACLOFEN. [Suspect]
     Active Substance: BACLOFEN
     Dosage: 160 TABLETS
     Route: 048
     Dates: start: 20150907, end: 20150908
  6. BACLOFEN. [Suspect]
     Active Substance: BACLOFEN
     Indication: PRODUCT USED FOR UNKNOWN INDICATION
     Dosage: 30 MG
     Route: 048
  7. ACAMPROSATE [Suspect]
     Active Substance: ACAMPROSATE
     Indication: PRODUCT USED FOR UNKNOWN INDICATION
     Dosage: 6 DF
     Route: 048

REACTIONS (2)
  - Coma [Recovered/Resolved]
  - Miosis [Recovered/Resolved]

NARRATIVE: CASE EVENT DATE: 20150908
